FAERS Safety Report 18828006 (Version 1)
Quarter: 2021Q1

REPORT INFORMATION
  Report Type: Spontaneous
  Country: US (occurrence: US)
  Receive Date: 20210201
  Receipt Date: 20210201
  Transmission Date: 20210419
  Serious: Yes (Other)
  Sender: FDA-Public Use
  Company Number: US-ABBVIE-20K-163-3498707-00

PATIENT
  Age: 60 Year
  Sex: Female
  Weight: 61.74 kg

DRUGS (5)
  1. TRESIBA [Concomitant]
     Active Substance: INSULIN DEGLUDEC
     Indication: DIABETES MELLITUS
     Dosage: 26 UNITS QAM
  2. HUMIRA [Suspect]
     Active Substance: ADALIMUMAB
     Route: 058
     Dates: start: 20200720
  3. HUMALOG [Concomitant]
     Active Substance: INSULIN LISPRO
     Indication: DIABETES MELLITUS
     Dosage: SLIDING SCALE
  4. HUMIRA [Suspect]
     Active Substance: ADALIMUMAB
     Indication: RHEUMATOID ARTHRITIS
     Route: 058
     Dates: start: 201901, end: 201911
  5. CLINDAMYCIN. [Suspect]
     Active Substance: CLINDAMYCIN
     Indication: BARTHOLIN^S CYST
     Route: 065
     Dates: start: 20200708

REACTIONS (6)
  - Fall [Recovered/Resolved]
  - Hip fracture [Recovered/Resolved]
  - Arthralgia [Recovered/Resolved]
  - Bartholin^s cyst [Recovered/Resolved]
  - Rash erythematous [Not Recovered/Not Resolved]
  - Pain [Recovered/Resolved]

NARRATIVE: CASE EVENT DATE: 201911
